FAERS Safety Report 6095574-1 (Version None)
Quarter: 2009Q1

REPORT INFORMATION
  Report Type: 
  Country: None (occurrence: None)
  Receive Date: 20090227
  Receipt Date: 20080423
  Transmission Date: 20090719
  Serious: No
  Sender: FDA-Public Use
  Company Number: A0725478A

PATIENT
  Sex: Male

DRUGS (4)
  1. LAMICTAL [Suspect]
     Indication: DRUG USE FOR UNKNOWN INDICATION
     Dosage: 150MG PER DAY
     Route: 048
  2. ADVAIR HFA [Concomitant]
     Dosage: 1PUFF TWICE PER DAY
     Route: 055
  3. LEXAPRO [Concomitant]
     Dosage: 20MG PER DAY
  4. FLUTICASONE PROPIONATE [Concomitant]
     Dosage: 1SPR TWICE PER DAY
     Route: 045

REACTIONS (1)
  - DRUG SCREEN POSITIVE [None]
